FAERS Safety Report 7286131-X (Version None)
Quarter: 2011Q1

REPORT INFORMATION
  Report Type: 
  Country: None (occurrence: None)
  Receive Date: 20110210
  Receipt Date: 20110204
  Transmission Date: 20110831
  Serious: Yes (Other)
  Sender: FDA-Public Use
  Company Number: FR-PFIZER INC-2011025511

PATIENT
  Age: 32 Year
  Sex: Male
  Weight: 80 kg

DRUGS (4)
  1. REFACTO [Suspect]
     Indication: FACTOR VIII DEFICIENCY
     Dosage: 400 IU, 2X/DAY, JUST BEFORE SURGERY
     Dates: start: 20101217
  2. REFACTO [Suspect]
     Dosage: 3000 IU EVERY TWELVE HOURS FOR TEN DAYS
  3. REFACTO [Suspect]
     Dosage: 3000 IU, 1X/DAY
     Dates: end: 20101229
  4. REFACTO [Suspect]
     Dosage: 3000 IU EVERY EIGHT HOURS FOR 24 HOURS AFTER SURGERY

REACTIONS (1)
  - FACTOR VIII INHIBITION [None]
